FAERS Safety Report 14026766 (Version 5)
Quarter: 2017Q4

REPORT INFORMATION
  Report Type: Report from Study
  Country: US (occurrence: US)
  Receive Date: 20170929
  Receipt Date: 20171109
  Transmission Date: 20180321
  Serious: Yes (Other)
  Sender: FDA-Public Use
  Company Number: US-JAZZ-2016-US-023899

PATIENT
  Age: 42 Year
  Sex: Female

DRUGS (34)
  1. XYREM [Suspect]
     Active Substance: SODIUM OXYBATE
     Dosage: 3 G QD OR BID
     Route: 048
  2. VITAMIN D3 [Concomitant]
     Active Substance: CHOLECALCIFEROL
  3. AMANTADINE. [Concomitant]
     Active Substance: AMANTADINE HYDROCHLORIDE
  4. HALOPERIDOL DECAN [Concomitant]
  5. XYREM [Suspect]
     Active Substance: SODIUM OXYBATE
     Indication: CATAPLEXY
     Dosage: DOSE ADJUSTMENT
     Route: 048
     Dates: start: 2016, end: 2016
  6. XYREM [Suspect]
     Active Substance: SODIUM OXYBATE
     Dosage: 3 G, TID
     Route: 048
  7. LEVOTHYROXINE. [Concomitant]
     Active Substance: LEVOTHYROXINE
  8. LYRICA [Concomitant]
     Active Substance: PREGABALIN
  9. SOMA [Concomitant]
     Active Substance: CARISOPRODOL
  10. REMERON [Suspect]
     Active Substance: MIRTAZAPINE
     Indication: PRODUCT USED FOR UNKNOWN INDICATION
  11. SONATA                             /00061001/ [Concomitant]
     Active Substance: CARISOPRODOL
  12. XYREM [Suspect]
     Active Substance: SODIUM OXYBATE
     Indication: NARCOLEPSY
     Dosage: 2.25 G, BID
     Route: 048
     Dates: start: 201605, end: 2016
  13. XYREM [Suspect]
     Active Substance: SODIUM OXYBATE
     Dosage: 4.5 G, BID
     Route: 048
     Dates: start: 201606
  14. SODIUM CHLORIDE. [Concomitant]
     Active Substance: SODIUM CHLORIDE
  15. BENZTROPINE [Concomitant]
     Active Substance: BENZTROPINE
  16. COLLAGEN [Suspect]
     Active Substance: COLLAGEN
     Indication: PRODUCT USED FOR UNKNOWN INDICATION
  17. CYMBALTA [Concomitant]
     Active Substance: DULOXETINE HYDROCHLORIDE
  18. FOLIC ACID. [Concomitant]
     Active Substance: FOLIC ACID
  19. CORTEF [Concomitant]
     Active Substance: HYDROCORTISONE
  20. NICORETTE [Concomitant]
     Active Substance: NICOTINE
  21. BIOTIN [Concomitant]
     Active Substance: BIOTIN
  22. VITAMIN B12 [Concomitant]
     Active Substance: CYANOCOBALAMIN
  23. OXYCODONE HYDROCHLORIDE. [Concomitant]
     Active Substance: OXYCODONE HYDROCHLORIDE
  24. SEROQUEL [Concomitant]
     Active Substance: QUETIAPINE FUMARATE
  25. OXYCONTIN [Concomitant]
     Active Substance: OXYCODONE HYDROCHLORIDE
  26. TRAZODONE [Suspect]
     Active Substance: TRAZODONE HYDROCHLORIDE
     Indication: SLEEP DISORDER
     Dosage: 100 MG, QD
  27. CYANOCOBALAMIN (57 CO) [Concomitant]
  28. TOPAMAX [Concomitant]
     Active Substance: TOPIRAMATE
  29. XANAX [Concomitant]
     Active Substance: ALPRAZOLAM
  30. FLUORODEOXYGLUCOSE 18F [Concomitant]
  31. LIDOCAINE. [Concomitant]
     Active Substance: LIDOCAINE
  32. MELATONIN [Concomitant]
     Active Substance: MELATONIN
  33. TEMAZEPAM. [Concomitant]
     Active Substance: TEMAZEPAM
  34. FENTANYL. [Concomitant]
     Active Substance: FENTANYL

REACTIONS (19)
  - Dyspepsia [Recovering/Resolving]
  - Food craving [Not Recovered/Not Resolved]
  - Blood pressure increased [Unknown]
  - Abnormal sensation in eye [Not Recovered/Not Resolved]
  - Emotional poverty [Not Recovered/Not Resolved]
  - Pre-existing condition improved [Unknown]
  - Drug dose omission [Unknown]
  - Drug ineffective [Unknown]
  - Memory impairment [Not Recovered/Not Resolved]
  - Fatigue [Unknown]
  - Collagen disorder [Unknown]
  - Heart rate increased [Recovered/Resolved]
  - Road traffic accident [Unknown]
  - Insomnia [Unknown]
  - Therapeutic response unexpected [Unknown]
  - Loss of consciousness [Recovered/Resolved]
  - Feeling abnormal [Unknown]
  - Stress [Not Recovered/Not Resolved]
  - Thinking abnormal [Not Recovered/Not Resolved]

NARRATIVE: CASE EVENT DATE: 201612
